FAERS Safety Report 10409730 (Version 1)
Quarter: 2014Q3

REPORT INFORMATION
  Report Type: Spontaneous
  Country: US (occurrence: US)
  Receive Date: 20140826
  Receipt Date: 20140826
  Transmission Date: 20150326
  Serious: Yes (Hospitalization, Other)
  Sender: FDA-Public Use
  Company Number: US-B.I. PHARMACEUTICALS,INC./RIDGEFIELD-2014-BI-38617BP

PATIENT
  Age: 75 Year
  Sex: Male

DRUGS (19)
  1. ZOCOR [Concomitant]
     Active Substance: SIMVASTATIN
     Dosage: 5 MG
     Route: 065
  2. PRADAXA [Suspect]
     Active Substance: DABIGATRAN ETEXILATE MESYLATE
     Indication: ATRIAL FIBRILLATION
     Dosage: 300 MG
     Route: 065
     Dates: start: 20110223, end: 20110720
  3. ADVIL [Concomitant]
     Active Substance: IBUPROFEN
     Route: 065
  4. FOLIC ACID. [Concomitant]
     Active Substance: FOLIC ACID
     Route: 065
  5. PACERONE [Concomitant]
     Active Substance: AMIODARONE HYDROCHLORIDE
     Dosage: 400 MG
     Route: 065
  6. LASIX [Concomitant]
     Active Substance: FUROSEMIDE
     Dosage: 40 MG
     Route: 065
  7. LOSARTADINE [Concomitant]
     Dosage: 10 MG
     Route: 065
  8. COREG [Concomitant]
     Active Substance: CARVEDILOL
     Dosage: 6.25 MG
     Route: 065
  9. SYNTHROID [Concomitant]
     Active Substance: LEVOTHYROXINE SODIUM
     Dosage: 175 MCG
     Route: 065
  10. PENICILLIN [Concomitant]
     Active Substance: PENICILLIN
     Indication: TOOTH INFECTION
     Route: 065
     Dates: start: 20110716
  11. VITAMIN D [Concomitant]
     Active Substance: CHOLECALCIFEROL
     Dosage: 2000 U
     Route: 065
  12. KLOR-CON [Concomitant]
     Active Substance: POTASSIUM CHLORIDE
     Dosage: 40 MEQ
     Route: 065
  13. ADVAIR HFA [Concomitant]
     Active Substance: FLUTICASONE PROPIONATE\SALMETEROL XINAFOATE
     Route: 065
  14. VITAMIN B12 [Concomitant]
     Active Substance: CYANOCOBALAMIN
     Dosage: 2500 MCG
     Route: 065
  15. MULTIVITAMIN [Concomitant]
     Active Substance: VITAMINS
     Route: 065
  16. CARDURA [Concomitant]
     Active Substance: DOXAZOSIN MESYLATE
     Dosage: 4 MG
     Route: 065
  17. DIGOXIN. [Concomitant]
     Active Substance: DIGOXIN
     Dosage: 0.125 MG
     Route: 065
  18. PROAIR HFA [Concomitant]
     Active Substance: ALBUTEROL SULFATE
     Route: 065
  19. FISH OIL [Concomitant]
     Active Substance: FISH OIL
     Dosage: 1000 MG
     Route: 065

REACTIONS (7)
  - Pericardial haemorrhage [Recovered/Resolved]
  - Cardiac tamponade [Recovered/Resolved]
  - Coagulopathy [Unknown]
  - Hepatic enzyme increased [Unknown]
  - Hydrocele [Unknown]
  - Cellulitis of male external genital organ [Unknown]
  - Renal failure acute [Recovered/Resolved]

NARRATIVE: CASE EVENT DATE: 20110727
